FAERS Safety Report 9323763 (Version 1)
Quarter: 2013Q2

REPORT INFORMATION
  Report Type: Spontaneous
  Country: US (occurrence: US)
  Receive Date: 20130603
  Receipt Date: 20130603
  Transmission Date: 20140414
  Serious: Yes (Hospitalization)
  Sender: FDA-Public Use
  Company Number: US-PFIZER INC-2013166011

PATIENT
  Age: 88 Year
  Sex: Female

DRUGS (1)
  1. INDERAL LA [Suspect]
     Indication: HYPERTENSION
     Dosage: 1 DF, DAILY (ONE 120 MG CAPSULE)
     Route: 048

REACTIONS (3)
  - Pulmonary oedema [Unknown]
  - Oedema peripheral [Unknown]
  - Dyspnoea [Unknown]
